FAERS Safety Report 7057308-3 (Version None)
Quarter: 2010Q4

REPORT INFORMATION
  Report Type: 
  Country: None (occurrence: None)
  Receive Date: 20101022
  Receipt Date: 20101019
  Transmission Date: 20110411
  Serious: Yes (Other)
  Sender: FDA-Public Use
  Company Number: US-BRISTOL-MYERS SQUIBB COMPANY-15341936

PATIENT
  Sex: Female

DRUGS (3)
  1. ONGLYZA [Suspect]
     Indication: TYPE 2 DIABETES MELLITUS
  2. NOVOLOG [Suspect]
     Dosage: 1 DF = 10 UNITS
     Dates: start: 20100920
  3. LANTUS [Suspect]

REACTIONS (2)
  - ANTIPHOSPHOLIPID ANTIBODIES POSITIVE [None]
  - WEIGHT INCREASED [None]
